FAERS Safety Report 4963477-9 (Version None)
Quarter: 2006Q2

REPORT INFORMATION
  Report Type: 
  Country: None (occurrence: None)
  Receive Date: 20060404
  Receipt Date: 20060404
  Transmission Date: 20061013
  Serious: Yes (Hospitalization)
  Sender: FDA-Public Use
  Company Number: None

PATIENT
  Age: 52 Year
  Sex: Female
  Weight: 94.8018 kg

DRUGS (12)
  1. EPTIFIBATIDE 0.75 MG/ML MILLENIUM [Suspect]
     Indication: CATHETERISATION CARDIAC
     Dosage: 2 MCG/KG/MINUTE FOR 18 HOURS CONSTATN INFUSION IV DRIP
     Route: 041
     Dates: start: 20060330, end: 20060331
  2. EPTIFIBATIDE 0.75 MG/ML MILLENIUM [Suspect]
     Indication: CORONARY ARTERIAL STENT INSERTION
     Dosage: 2 MCG/KG/MINUTE FOR 18 HOURS CONSTATN INFUSION IV DRIP
     Route: 041
     Dates: start: 20060330, end: 20060331
  3. METOPROLOL SR [Concomitant]
  4. ATORVASTATIN CALCIUM [Concomitant]
  5. HYDROCHLOROTHIAZIDE [Concomitant]
  6. ESOMEPRAZOLE [Concomitant]
  7. ESOMEPRAZOLE [Concomitant]
  8. VENLAFAXINE SR [Concomitant]
  9. ENALAPRIL MALEATE [Concomitant]
  10. ASPIRIN [Concomitant]
  11. CLOPIDEGRIL [Concomitant]
  12. HEPARIN [Concomitant]

REACTIONS (2)
  - POST PROCEDURAL COMPLICATION [None]
  - THROMBOCYTOPENIA [None]
